FAERS Safety Report 8528735-X (Version None)
Quarter: 2012Q3

REPORT INFORMATION
  Report Type: 
  Country: None (occurrence: None)
  Receive Date: 20120716
  Receipt Date: 20120716
  Transmission Date: 20120928
  Serious: No
  Sender: FDA-Public Use
  Company Number: None

PATIENT
  Sex: Male

DRUGS (1)
  1. DURAGESIC 25 MCG JANSEN [Suspect]
     Indication: PAIN
     Dosage: 25 MCG (ALONG WITH 100 MCG) Q48HR TOPICALLY
     Route: 061
     Dates: start: 20120630, end: 20120713

REACTIONS (5)
  - ADHESION [None]
  - FEELING ABNORMAL [None]
  - WRONG TECHNIQUE IN DRUG USAGE PROCESS [None]
  - PRODUCT ADHESION ISSUE [None]
  - INCORRECT DRUG DOSAGE FORM ADMINISTERED [None]
